FAERS Safety Report 8761722 (Version 1)
Quarter: 2012Q4

REPORT INFORMATION
  Report Type: 
  Country: US (occurrence: None)
  Receive Date: 20120830
  Receipt Date: 20120830
  Transmission Date: 20130627
  Serious: Yes (Hospitalization)
  Sender: FDA-Public Use
  Company Number: None

PATIENT
  Sex: Female
  Weight: 14.5 kg

DRUGS (6)
  1. CYTARABINE [Suspect]
     Route: 037
     Dates: end: 20120801
  2. DAUNORUBICIN [Suspect]
     Dates: end: 20120826
  3. DEXAMETHASONE [Suspect]
     Dates: end: 20120814
  4. METHOTREXATE [Suspect]
     Route: 037
     Dates: end: 20120808
  5. PEG-L-ASPARAGINASE (PEGASPARGASE, ONCOSPAR) [Suspect]
     Dates: end: 20120804
  6. VINCRISTINE SULFATE [Suspect]
     Dates: end: 20120826

REACTIONS (10)
  - Empyema [None]
  - Pleural effusion [None]
  - Atelectasis [None]
  - Pneumonia [None]
  - Moraxella test positive [None]
  - Respiratory distress [None]
  - Culture urine positive [None]
  - Escherichia test positive [None]
  - Neutropenia [None]
  - Zygomycosis [None]
